FAERS Safety Report 19252060 (Version 2)
Quarter: 2021Q2

REPORT INFORMATION
  Report Type: Report from Study
  Country: MX (occurrence: MX)
  Receive Date: 20210513
  Receipt Date: 20210617
  Transmission Date: 20210717
  Serious: Yes (Other)
  Sender: FDA-Public Use
  Company Number: MX-UCBSA-2021022327

PATIENT
  Sex: Female
  Weight: 85 kg

DRUGS (6)
  1. LEVODOPA/CARBIDOPA [Concomitant]
     Active Substance: CARBIDOPA\LEVODOPA
     Indication: PARKINSON^S DISEASE
  2. ROTIGOTINE [Suspect]
     Active Substance: ROTIGOTINE
     Indication: PARKINSON^S DISEASE
     Dosage: 6 MILLIGRAM, ONCE DAILY (QD)
     Dates: start: 2001, end: 2002
  3. ROTIGOTINE [Suspect]
     Active Substance: ROTIGOTINE
     Dosage: ONE 8 MG AND ANOTHER 4MG, (2 PATCHES) ONCE DAILY (QD)
     Dates: start: 2011, end: 2015
  4. SIFROL [Concomitant]
     Active Substance: PRAMIPEXOLE
     Indication: PARALYSIS
  5. ROTIGOTINE [Suspect]
     Active Substance: ROTIGOTINE
     Dosage: 8 MILLIGRAM, ONCE DAILY (QD)
     Dates: start: 2002, end: 2007
  6. ROTIGOTINE [Suspect]
     Active Substance: ROTIGOTINE
     Dosage: ONE 8 MG AND ANOTHER 6 MG, 2 PATCH ONCE DAILY (QD)
     Dates: start: 2015

REACTIONS (3)
  - Paralysis [Recovering/Resolving]
  - Depression [Unknown]
  - Tremor [Unknown]

NARRATIVE: CASE EVENT DATE: 2017
